FAERS Safety Report 15989650 (Version 1)
Quarter: 2019Q1

REPORT INFORMATION
  Report Type: Spontaneous
  Country: US (occurrence: US)
  Receive Date: 20190221
  Receipt Date: 20190221
  Transmission Date: 20190418
  Serious: No
  Sender: FDA-Public Use
  Company Number: US-PFIZER INC-2019073554

PATIENT
  Age: 61 Year
  Sex: Female
  Weight: 81 kg

DRUGS (1)
  1. IBRANCE [Suspect]
     Active Substance: PALBOCICLIB
     Indication: BREAST CANCER
     Dosage: 125MG CAPSULE ONCE A DAY BY MOUTH FOR 21 DAYS THEN OFF FOR 7 DAYS
     Route: 048
     Dates: start: 20181025, end: 201901

REACTIONS (1)
  - Neoplasm progression [Unknown]
